FAERS Safety Report 4659668-7 (Version None)
Quarter: 2005Q2

REPORT INFORMATION
  Report Type: 
  Country: None (occurrence: None)
  Receive Date: 20050502
  Receipt Date: 20050112
  Transmission Date: 20051028
  Serious: No
  Sender: FDA-Public Use
  Company Number: 200419772US

PATIENT
  Age: 28 Year
  Sex: Female
  Weight: 50 kg

DRUGS (4)
  1. KETEK [Suspect]
     Indication: LARYNGITIS
     Dosage: ONCE PO
     Route: 048
     Dates: start: 20041210, end: 20041210
  2. KETEK [Suspect]
     Indication: PHARYNGITIS
     Dosage: ONCE PO
     Route: 048
     Dates: start: 20041210, end: 20041210
  3. KETEK [Suspect]
     Indication: TONSILLITIS
     Dosage: ONCE PO
     Route: 048
     Dates: start: 20041210, end: 20041210
  4. IBUPROFEN (MOTRIN IB) [Concomitant]

REACTIONS (1)
  - VOMITING [None]
